FAERS Safety Report 17119017 (Version 1)
Quarter: 2019Q4

REPORT INFORMATION
  Report Type: Spontaneous
  Country: US (occurrence: US)
  Receive Date: 20191206
  Receipt Date: 20191206
  Transmission Date: 20200122
  Serious: No
  Sender: FDA-Public Use
  Company Number: US-UCBSA-2017034984

PATIENT
  Age: 27 Year
  Sex: Female

DRUGS (1)
  1. KEPPRA [Suspect]
     Active Substance: LEVETIRACETAM
     Indication: PARTIAL SEIZURES
     Dosage: 250 MG
     Dates: start: 20170401, end: 20170421

REACTIONS (6)
  - Adverse drug reaction [Unknown]
  - Nightmare [Unknown]
  - Hypersomnia [Unknown]
  - Rash [Unknown]
  - Anger [Unknown]
  - Cold sweat [Unknown]

NARRATIVE: CASE EVENT DATE: 201704
